FAERS Safety Report 12089434 (Version 1)
Quarter: 2016Q1

REPORT INFORMATION
  Report Type: Spontaneous
  Country: DE (occurrence: DE)
  Receive Date: 20160218
  Receipt Date: 20160218
  Transmission Date: 20160526
  Serious: Yes (Hospitalization)
  Sender: FDA-Public Use
  Company Number: DE-ACTAVIS-2016-02513

PATIENT
  Age: 38 Year
  Sex: Female

DRUGS (1)
  1. PANTOPRAZOLE SODIUM. [Suspect]
     Active Substance: PANTOPRAZOLE SODIUM
     Indication: REFLUX GASTRITIS
     Dosage: 40 MG, DAILY
     Route: 048
     Dates: start: 20150714, end: 20151216

REACTIONS (1)
  - Pancreatitis [Recovered/Resolved]

NARRATIVE: CASE EVENT DATE: 2015
